FAERS Safety Report 4576075-6 (Version None)
Quarter: 2005Q1

REPORT INFORMATION
  Report Type: 
  Country: None (occurrence: None)
  Receive Date: 20050204
  Receipt Date: 20050124
  Transmission Date: 20050727
  Serious: Yes (Hospitalization)
  Sender: FDA-Public Use
  Company Number: 2005019756

PATIENT
  Age: 60 Year
  Sex: Male
  Weight: 83 kg

DRUGS (7)
  1. AMLODIPINE [Suspect]
     Indication: ILL-DEFINED DISORDER
     Dosage: 10 MG (10 MG , 1 IN 1 D), ORAL
     Route: 048
     Dates: start: 20040330
  2. ACETYLSALICYLIC ACID SRT [Suspect]
     Indication: ILL-DEFINED DISORDER
     Dosage: 75 MG (75 MG, 1 IN 1 D), ORAL
     Route: 048
     Dates: start: 20040330
  3. THALIDOMIDE (THALIDOMIDE ) [Suspect]
     Indication: ILL-DEFINED DISORDER
     Dosage: 400 MG (400 MG, 1 IN 1 D), ORAL
     Route: 048
     Dates: start: 20040722
  4. ZOLEDRONIC ACID (ZOLEDRONIC ACID) [Suspect]
     Dosage: 4 MG (1 IN 1 M), INTRAVENOUS
     Route: 030
     Dates: start: 20040722, end: 20041117
  5. SIMVASTATIN (SIVASTATIN) [Suspect]
     Indication: ILL-DEFINED DISORDER
     Dosage: 20 MG (20 MG, 1 IN 1D), ORAL
     Route: 048
     Dates: start: 20040330
  6. INDAPAMIDE [Suspect]
     Indication: ILL-DEFINED DISORDER
     Dosage: (1.5 MG), ORAL
     Route: 048
     Dates: start: 20040427, end: 20041120
  7. EPOETIN BETA (EPOETIN BETA) [Concomitant]

REACTIONS (2)
  - NEPHRITIS INTERSTITIAL [None]
  - RENAL FAILURE ACUTE [None]
